FAERS Safety Report 8804412 (Version 3)
Quarter: 2012Q4

REPORT INFORMATION
  Report Type: 
  Country: US (occurrence: US)
  Receive Date: 20120924
  Receipt Date: 20121119
  Transmission Date: 20130627
  Serious: Yes (Hospitalization, Disabling)
  Sender: FDA-Public Use
  Company Number: US-BAYER-2012-097774

PATIENT
  Age: 33 Year
  Sex: Female

DRUGS (4)
  1. YAZ [Suspect]
  2. WELLBUTRIN [Concomitant]
     Route: 048
  3. CELEXA [Concomitant]
     Route: 048
  4. ZOVIA [Concomitant]
     Route: 048

REACTIONS (6)
  - Pulmonary embolism [Recovered/Resolved]
  - Injury [Recovered/Resolved]
  - Pain [None]
  - Emotional distress [None]
  - Anxiety [None]
  - Fear [None]
